FAERS Safety Report 24414089 (Version 2)
Quarter: 2024Q4

REPORT INFORMATION
  Report Type: Spontaneous
  Country: BR (occurrence: BR)
  Receive Date: 20241008
  Receipt Date: 20241023
  Transmission Date: 20250115
  Serious: Yes (Other)
  Sender: BAUSCH AND LOMB
  Company Number: BR-BAUSCHBL-2024BNL034737

PATIENT
  Age: 73 Year
  Sex: Female

DRUGS (3)
  1. LOTEPREDNOL ETABONATE [Suspect]
     Active Substance: LOTEPREDNOL ETABONATE
     Indication: Glaucoma
     Dosage: USE EVERY 12 HOURS WITH WEANING EVERY 7 DAYS
     Route: 047
     Dates: start: 20230717
  2. LOTEPREDNOL ETABONATE [Suspect]
     Active Substance: LOTEPREDNOL ETABONATE
     Indication: Off label use
     Route: 047
  3. PREDNISOLONE [Suspect]
     Active Substance: PREDNISOLONE
     Indication: Product used for unknown indication
     Route: 065

REACTIONS (2)
  - Corneal graft rejection [Unknown]
  - Off label use [Unknown]

NARRATIVE: CASE EVENT DATE: 20230717
